FAERS Safety Report 5695779-5 (Version None)
Quarter: 2008Q2

REPORT INFORMATION
  Report Type: 
  Country: None (occurrence: None)
  Receive Date: 20080407
  Receipt Date: 20080326
  Transmission Date: 20081010
  Serious: Yes (Life-Threatening, Hospitalization)
  Sender: FDA-Public Use
  Company Number: FR-WYE-H03432408

PATIENT
  Sex: Female

DRUGS (11)
  1. CORDARONE [Suspect]
     Indication: ATRIAL FIBRILLATION
     Route: 048
     Dates: start: 20080124, end: 20080124
  2. CORDARONE [Interacting]
     Route: 048
     Dates: start: 20080125, end: 20080125
  3. CORDARONE [Interacting]
     Route: 048
     Dates: start: 20080126, end: 20080126
  4. LASILIX [Concomitant]
     Dosage: DOSE UNKNOWN
     Route: 048
     Dates: end: 20080126
  5. PREVISCAN [Concomitant]
     Dosage: DOSE UNKNOWN
     Route: 048
  6. ALDACTONE [Concomitant]
     Dosage: DOSE UNKNOWN
     Route: 048
  7. MUCOMYST [Concomitant]
     Dosage: DOSE UNKNOWN
     Route: 065
  8. ATACAND [Concomitant]
     Dosage: DOSE UNKNOWN
     Route: 048
  9. SPIRIVA [Concomitant]
     Dosage: DOSE UNKNOWN
     Route: 055
  10. MOTILIUM [Interacting]
     Indication: NAUSEA
     Route: 048
     Dates: start: 20080125, end: 20080125
  11. MONO-TILDIEM [Concomitant]
     Dosage: DOSE UNKNOWN
     Route: 048

REACTIONS (2)
  - DRUG INTERACTION [None]
  - TORSADE DE POINTES [None]
